FAERS Safety Report 21032704 (Version 1)
Quarter: 2022Q3

REPORT INFORMATION
  Report Type: Spontaneous
  Country: US (occurrence: None)
  Receive Date: 20220701
  Receipt Date: 20220701
  Transmission Date: 20221026
  Serious: Yes (Hospitalization, Other)
  Sender: FDA-Public Use
  Company Number: US-MICRO LABS LIMITED-ML2022-03100

PATIENT
  Age: 72 Year
  Sex: Male

DRUGS (6)
  1. VERAPAMIL HYDROCHLORIDE [Suspect]
     Active Substance: VERAPAMIL HYDROCHLORIDE
  2. METOPROLOL [Suspect]
     Active Substance: METOPROLOL
  3. DEXTROSE [Concomitant]
     Active Substance: DEXTROSE
     Indication: Hyperkalaemia
  4. INSULIN NOS [Concomitant]
     Active Substance: INSULIN NOS
     Indication: Hyperkalaemia
  5. CALCIUM GLUCONATE [Concomitant]
     Active Substance: CALCIUM GLUCONATE
     Indication: Hyperkalaemia
  6. ALBUTEROL [Concomitant]
     Active Substance: ALBUTEROL
     Indication: Hyperkalaemia

REACTIONS (1)
  - BRASH syndrome [Recovered/Resolved]
